FAERS Safety Report 25860521 (Version 1)
Quarter: 2025Q3

REPORT INFORMATION
  Report Type: Spontaneous
  Country: US (occurrence: US)
  Receive Date: 20250929
  Receipt Date: 20250929
  Transmission Date: 20251021
  Serious: Yes (Life-Threatening, Hospitalization, Other)
  Sender: NOVO NORDISK
  Company Number: US-NOVOPROD-1525876

PATIENT
  Sex: Male

DRUGS (1)
  1. OZEMPIC [Suspect]
     Active Substance: SEMAGLUTIDE
     Indication: Product used for unknown indication
     Dates: start: 202405

REACTIONS (3)
  - Acute cholecystitis necrotic [Not Recovered/Not Resolved]
  - Sepsis [Not Recovered/Not Resolved]
  - Quality of life decreased [Not Recovered/Not Resolved]

NARRATIVE: CASE EVENT DATE: 20240609
